FAERS Safety Report 4302876-5 (Version None)
Quarter: 2004Q1

REPORT INFORMATION
  Report Type: 
  Country: None (occurrence: None)
  Receive Date: 20040223
  Receipt Date: 20040223
  Transmission Date: 20041129
  Serious: Yes (Hospitalization)
  Sender: FDA-Public Use
  Company Number: None

PATIENT
  Age: 47 Year
  Sex: Male
  Weight: 75.2971 kg

DRUGS (7)
  1. INDINAVIR (MERCK) [Suspect]
     Indication: URTICARIA
     Dosage: 800 MG BID
     Dates: start: 20031119
  2. RITONAVIR (ABBOTT LABORATORIES) [Suspect]
     Indication: URTICARIA
     Dosage: 100 MG BID
     Dates: start: 20031119
  3. STAVUDINE (BRISTOL MYER SQUIBB) [Suspect]
     Indication: URTICARIA
     Dosage: 40 MG BID
     Dates: start: 20031119
  4. DIDANOSINE (BRISTOL MYER SQUIBB) [Suspect]
     Indication: URTICARIA
     Dosage: 250 MG QD
     Dates: start: 20031119
  5. TENOFOVIR (GILEAD) [Suspect]
     Indication: URTICARIA
     Dosage: 300 MG QD
     Dates: start: 20031119
  6. ABACAVIR (GLAXO SMITH KLINE) [Suspect]
     Indication: URTICARIA
     Dosage: 300 MG BID
     Dates: start: 20031119
  7. ENFUVIRTIDE (ROCHE) [Suspect]
     Indication: URTICARIA
     Dosage: 90 MG SQ BID
     Route: 058
     Dates: start: 20031119

REACTIONS (5)
  - CHEST PAIN [None]
  - DIZZINESS [None]
  - DYSPNOEA [None]
  - PALPITATIONS [None]
  - VENTRICULAR EXTRASYSTOLES [None]
